FAERS Safety Report 9152549 (Version 1)
Quarter: 2013Q1

REPORT INFORMATION
  Report Type: Spontaneous
  Country: US (occurrence: US)
  Receive Date: 20130308
  Receipt Date: 20130308
  Transmission Date: 20140127
  Serious: No
  Sender: FDA-Public Use
  Company Number: US-ASTRAZENECA-2013SE07478

PATIENT
  Age: 77 Year
  Sex: Female
  Weight: 81.2 kg

DRUGS (5)
  1. NEXIUM [Suspect]
     Route: 048
  2. NEXIUM [Suspect]
     Route: 048
  3. SIMVASTATIN [Concomitant]
  4. METFORMIN [Concomitant]
  5. GLUCOSAMINE SULFATE [Concomitant]

REACTIONS (1)
  - Polyp [Unknown]
